FAERS Safety Report 9643196 (Version 1)
Quarter: 2013Q4

REPORT INFORMATION
  Report Type: Spontaneous
  Country: US (occurrence: US)
  Receive Date: 20131024
  Receipt Date: 20131024
  Transmission Date: 20140711
  Serious: No
  Sender: FDA-Public Use
  Company Number: US-GLAXOSMITHKLINE-A1023074A

PATIENT
  Age: 55 Year
  Sex: Female

DRUGS (3)
  1. DUAC [Suspect]
     Indication: ACNE
     Dosage: 1APP AT NIGHT
     Route: 061
     Dates: start: 201205
  2. TYLENOL WITH CODEINE [Concomitant]
  3. MOTRIN [Concomitant]

REACTIONS (1)
  - Acne [Recovering/Resolving]
